FAERS Safety Report 8620073-X (Version None)
Quarter: 2012Q3

REPORT INFORMATION
  Report Type: 
  Country: None (occurrence: None)
  Receive Date: 20120816
  Receipt Date: 20120816
  Transmission Date: 20120928
  Serious: Yes (Life-Threatening, Hospitalization, Other)
  Sender: FDA-Public Use
  Company Number: None

PATIENT
  Age: 77 Year
  Sex: Female
  Weight: 61.2356 kg

DRUGS (2)
  1. METFORMIN HYDROCHLORIDE [Suspect]
     Indication: HYPERTENSION
     Dosage: 1 TABLET TWICE A DAY PO
     Route: 048
     Dates: start: 20120810, end: 20120813
  2. PLAVIX [Suspect]
     Indication: DIABETES MELLITUS
     Dosage: 1 TABLET PER DAY PO
     Route: 048
     Dates: start: 20120213, end: 20120813

REACTIONS (9)
  - BLOOD PRESSURE SYSTOLIC INCREASED [None]
  - FEELING ABNORMAL [None]
  - SPEECH DISORDER [None]
  - ASTHENIA [None]
  - MYALGIA [None]
  - RHINORRHOEA [None]
  - DEFORMITY [None]
  - GAIT DISTURBANCE [None]
  - SNEEZING [None]
